FAERS Safety Report 15523385 (Version 1)
Quarter: 2018Q4

REPORT INFORMATION
  Report Type: Spontaneous
  Country: US (occurrence: US)
  Receive Date: 20181015
  Receipt Date: 20181015
  Transmission Date: 20190205
  Serious: No
  Sender: FDA-Public Use
  Company Number: None

PATIENT
  Age: 17 Year
  Sex: Female

DRUGS (3)
  1. PULMOZYME [Concomitant]
     Active Substance: DORNASE ALFA
  2. TOBI PODHALER [Suspect]
     Active Substance: TOBRAMYCIN
  3. SYDMEKO [Concomitant]

REACTIONS (2)
  - Cough [None]
  - Haemoptysis [None]

NARRATIVE: CASE EVENT DATE: 20181012
